FAERS Safety Report 7941360-4 (Version None)
Quarter: 2011Q4

REPORT INFORMATION
  Report Type: 
  Country: None (occurrence: None)
  Receive Date: 20111128
  Receipt Date: 20111116
  Transmission Date: 20120403
  Serious: Yes (Hospitalization, Disabling)
  Sender: FDA-Public Use
  Company Number: US-BAYER-2011-061798

PATIENT
  Age: 24 Year
  Sex: Female
  Weight: 92.517 kg

DRUGS (16)
  1. LEXAPRO [Concomitant]
     Dosage: 20 MG, QD
  2. CARBAMAZEPINE [Concomitant]
     Dosage: UNK
     Dates: start: 20050101
  3. PIROXICAM [Concomitant]
     Dosage: 20 MG, UNK
     Dates: start: 20050101
  4. DIAZEPAM [Concomitant]
     Dosage: UNK UNK, 4IW
     Route: 048
     Dates: start: 20050101
  5. MELOXICAM [Concomitant]
     Dosage: UNK
     Dates: start: 20050101
  6. TOPIRAMATE [Concomitant]
     Dosage: 200 MG, UNK
     Route: 048
     Dates: start: 20000201
  7. LEVOTHYROXINE SODIUM [Concomitant]
     Dosage: UNK
     Dates: start: 20050101
  8. YAZ [Suspect]
     Indication: ACNE
     Dosage: UNK
     Dates: start: 20060901, end: 20080901
  9. MULTI-VITAMIN [Concomitant]
     Route: 048
  10. YAZ [Suspect]
     Indication: PREMENSTRUAL SYNDROME
  11. NAPROSYN [Concomitant]
     Dosage: 81 MG, UNK
     Dates: start: 20050101, end: 20100101
  12. CITALOPRAM HYDROBROMIDE [Concomitant]
     Dosage: UNK
     Dates: start: 20050101
  13. LODRANE 24 [Concomitant]
  14. NORDETTE-21 [Concomitant]
     Dosage: UNK
     Dates: start: 20020101
  15. OMEPRAZOLE [Concomitant]
     Dosage: 20 MG, UNK
     Route: 048
     Dates: start: 20050101
  16. FEXOFENADINE [Concomitant]
     Dosage: UNK
     Dates: start: 20050101

REACTIONS (10)
  - HAEMORRHAGIC STROKE [None]
  - PAIN [None]
  - EMOTIONAL DISTRESS [None]
  - COGNITIVE DISORDER [None]
  - SUBDURAL HAEMORRHAGE [None]
  - ANXIETY [None]
  - SUBARACHNOID HAEMORRHAGE [None]
  - GENERAL PHYSICAL HEALTH DETERIORATION [None]
  - SKULL FRACTURED BASE [None]
  - INJURY [None]
